FAERS Safety Report 14020471 (Version 6)
Quarter: 2020Q1

REPORT INFORMATION
  Report Type: Spontaneous
  Country: JP (occurrence: JP)
  Receive Date: 20170928
  Receipt Date: 20200303
  Transmission Date: 20200409
  Serious: Yes (Hospitalization, Other)
  Sender: FDA-Public Use
  Company Number: JP-AMGEN-JPNSP2017145373

PATIENT
  Age: 66 Year
  Sex: Female
  Weight: 66 kg

DRUGS (19)
  1. PRALIA [Suspect]
     Active Substance: DENOSUMAB
     Dosage: 60 MILLIGRAM
     Route: 058
     Dates: start: 20170926
  2. MICARDIS [Concomitant]
     Active Substance: TELMISARTAN
     Dosage: 40 MG, QD
     Route: 048
  3. CRESTOR [Concomitant]
     Active Substance: ROSUVASTATIN CALCIUM
     Dosage: 5 MILLIGRAM, QD
     Route: 048
  4. DENOTAS [Concomitant]
     Active Substance: CALCIUM CARBONATE\CHOLECALCIFEROL\MAGNESIUM CARBONATE
     Dosage: UNK
     Route: 048
     Dates: start: 20170926
  5. BAYASPIRIN [Concomitant]
     Active Substance: ASPIRIN
     Indication: PRODUCT USED FOR UNKNOWN INDICATION
     Dosage: 100 MILLIGRAM, QD
     Route: 048
  6. CRESTOR [Concomitant]
     Active Substance: ROSUVASTATIN CALCIUM
     Indication: HYPERCHOLESTEROLAEMIA
     Dosage: 5 MILLIGRAM, QD
     Route: 048
  7. PRALIA [Suspect]
     Active Substance: DENOSUMAB
     Indication: OSTEOPOROSIS
     Dosage: 60 MILLIGRAM, Q6MO
     Route: 058
     Dates: start: 20141008, end: 20161018
  8. PRALIA [Suspect]
     Active Substance: DENOSUMAB
     Dosage: 60 MILLIGRAM, Q6MO
     Route: 058
     Dates: start: 20151014
  9. PRALIA [Suspect]
     Active Substance: DENOSUMAB
     Dosage: 60 MILLIGRAM, Q6MO
     Route: 058
     Dates: start: 20160412
  10. PRALIA [Suspect]
     Active Substance: DENOSUMAB
     Dosage: 60 MILLIGRAM
     Route: 058
     Dates: start: 201708
  11. DENOTAS [Concomitant]
     Active Substance: CALCIUM CARBONATE\CHOLECALCIFEROL\MAGNESIUM CARBONATE
     Indication: OSTEOPOROSIS
     Dosage: 2 DF, QD
     Route: 048
     Dates: start: 20141008, end: 20170311
  12. LOXOPROFEN [Concomitant]
     Active Substance: LOXOPROFEN
     Dosage: UNK
     Route: 065
     Dates: start: 20170818, end: 20170909
  13. MICARDIS [Concomitant]
     Active Substance: TELMISARTAN
     Indication: HYPERTENSION
     Dosage: 40 MILLIGRAM, QD
     Route: 048
  14. MICARDIS [Concomitant]
     Active Substance: TELMISARTAN
     Dosage: 40 MILLIGRAM, QD
     Route: 048
  15. CRESTOR [Concomitant]
     Active Substance: ROSUVASTATIN CALCIUM
     Dosage: 5 MG, QD
     Route: 048
  16. PRALIA [Suspect]
     Active Substance: DENOSUMAB
     Dosage: 60 MILLIGRAM, Q6MO
     Route: 058
     Dates: start: 20150421
  17. BAYASPIRIN [Concomitant]
     Active Substance: ASPIRIN
     Indication: PRODUCT USED FOR UNKNOWN INDICATION
     Dosage: 100 MILLIGRAM, QD
     Route: 048
  18. BAYASPIRIN [Concomitant]
     Active Substance: ASPIRIN
     Dosage: 100 MG, QD
     Route: 048
  19. PRALIA [Suspect]
     Active Substance: DENOSUMAB
     Dosage: 60 MILLIGRAM, Q6MO
     Route: 058
     Dates: start: 20161018

REACTIONS (3)
  - Osteitis [Unknown]
  - Spinal fracture [Recovering/Resolving]
  - Spinal fracture [Recovered/Resolved]

NARRATIVE: CASE EVENT DATE: 20141112
